FAERS Safety Report 6950358-4 (Version None)
Quarter: 2010Q3

REPORT INFORMATION
  Report Type: 
  Country: None (occurrence: None)
  Receive Date: 20100828
  Receipt Date: 20100303
  Transmission Date: 20110219
  Serious: No
  Sender: FDA-Public Use
  Company Number: US-ABBOTT-10P-163-0624702-00

PATIENT
  Weight: 111.23 kg

DRUGS (3)
  1. NIASPAN [Suspect]
     Indication: BLOOD CHOLESTEROL INCREASED
     Dates: start: 20091101, end: 20100101
  2. NIASPAN [Suspect]
     Dates: start: 20100101
  3. COUMADIN [Concomitant]
     Indication: ATRIAL FIBRILLATION

REACTIONS (5)
  - ATRIAL FIBRILLATION [None]
  - CHILLS [None]
  - FLUSHING [None]
  - HEADACHE [None]
  - PARAESTHESIA [None]
